FAERS Safety Report 7446186-6 (Version None)
Quarter: 2011Q2

REPORT INFORMATION
  Report Type: 
  Country: None (occurrence: None)
  Receive Date: 20110429
  Receipt Date: 20110419
  Transmission Date: 20111010
  Serious: Yes (Other)
  Sender: FDA-Public Use
  Company Number: SE-US-EMD SERONO, INC.-7036358

PATIENT
  Sex: Female

DRUGS (5)
  1. REBIF [Suspect]
     Indication: PRODUCT USED FOR UNKNOWN INDICATION
     Dates: start: 20090401, end: 20110118
  2. SIMVASTATIN [Concomitant]
     Dates: start: 20101001
  3. LEVOTHYROXINE SODIUM [Concomitant]
     Dates: start: 20101001
  4. METFORMIN [Concomitant]
     Dates: start: 20101001
  5. DAIVOBET [Concomitant]
     Dosage: 50/0.5
     Dates: start: 20090601

REACTIONS (2)
  - RHEUMATOID ARTHRITIS [None]
  - HYPOTHYROIDISM [None]
